FAERS Safety Report 10082675 (Version 1)
Quarter: 2014Q2

REPORT INFORMATION
  Report Type: Spontaneous
  Country: CN (occurrence: CN)
  Receive Date: 20140416
  Receipt Date: 20140416
  Transmission Date: 20141212
  Serious: Yes (Other)
  Sender: FDA-Public Use
  Company Number: CN-ABBVIE-14P-035-1227010-00

PATIENT
  Age: 48 Year
  Sex: Female

DRUGS (2)
  1. DEPAKINE [Suspect]
     Indication: BIPOLAR DISORDER
     Route: 048
     Dates: start: 20130111, end: 20130122
  2. DEPAKINE [Suspect]
     Route: 048

REACTIONS (1)
  - Creatinine renal clearance decreased [Recovering/Resolving]
